FAERS Safety Report 7755006-1 (Version None)
Quarter: 2011Q3

REPORT INFORMATION
  Report Type: 
  Country: None (occurrence: None)
  Receive Date: 20110916
  Receipt Date: 20080803
  Transmission Date: 20111222
  Serious: No
  Sender: FDA-Public Use
  Company Number: 2005BI021832

PATIENT
  Sex: Female

DRUGS (3)
  1. AVONEX [Concomitant]
     Route: 030
     Dates: start: 20030901
  2. AVONEX [Concomitant]
     Indication: MULTIPLE SCLEROSIS
     Route: 030
     Dates: start: 19960601
  3. TYSABRI [Suspect]
     Indication: MULTIPLE SCLEROSIS
     Route: 042
     Dates: start: 20041201, end: 20050201

REACTIONS (19)
  - HYPERHIDROSIS [None]
  - DEPRESSED LEVEL OF CONSCIOUSNESS [None]
  - FEELING COLD [None]
  - ARTHRITIS [None]
  - SPINAL DEFORMITY [None]
  - GAIT DISTURBANCE [None]
  - PAIN [None]
  - NAUSEA [None]
  - MUSCLE SPASMS [None]
  - MOBILITY DECREASED [None]
  - ASTHENIA [None]
  - DYSKINESIA [None]
  - VISUAL IMPAIRMENT [None]
  - PRURITUS GENERALISED [None]
  - ABASIA [None]
  - MALAISE [None]
  - CHILLS [None]
  - FATIGUE [None]
  - ARTHRALGIA [None]
